FAERS Safety Report 5776619-2 (Version None)
Quarter: 2008Q2

REPORT INFORMATION
  Report Type: 
  Country: None (occurrence: None)
  Receive Date: 20080601
  Receipt Date: 20080117
  Transmission Date: 20081010
  Serious: No
  Sender: FDA-Public Use
  Company Number: US200801003932

PATIENT
  Age: 48 Year
  Sex: Female

DRUGS (4)
  1. BYETTA [Suspect]
     Indication: TYPE 2 DIABETES MELLITUS
     Dosage: SUBCUTANEOUS ; SUBCUTANEOUS ; 10 UG, 2/D, SUBCUTANEOUS
     Route: 058
     Dates: start: 20070101, end: 20070601
  2. METFORMIN HCL [Concomitant]
  3. ACTOS /USA/ (PIOGLITAZONE HYDROCHLORIDE) [Concomitant]
  4. LISINOPRIL /USA/ (LISINOPRIL) [Concomitant]

REACTIONS (3)
  - HYPERTENSION [None]
  - MALAISE [None]
  - VOMITING [None]
